FAERS Safety Report 4717554-8 (Version None)
Quarter: 2005Q3

REPORT INFORMATION
  Report Type: 
  Country: None (occurrence: None)
  Receive Date: 20050711
  Receipt Date: 20050316
  Transmission Date: 20060218
  Serious: Yes (Other)
  Sender: FDA-Public Use
  Company Number: A03200500766

PATIENT
  Age: 68 Year
  Sex: Male

DRUGS (3)
  1. UROXATRAL [Suspect]
     Dosage: 10 MG ONCE - ORAL
     Route: 048
     Dates: start: 20050316
  2. DULOXETINE [Concomitant]
  3. PREDNISONE [Concomitant]

REACTIONS (5)
  - BLOOD PRESSURE DECREASED [None]
  - DIZZINESS [None]
  - HEART RATE INCREASED [None]
  - LOSS OF CONSCIOUSNESS [None]
  - MUSCLE SPASMS [None]
